FAERS Safety Report 4747834-1 (Version None)
Quarter: 2005Q3

REPORT INFORMATION
  Report Type: 
  Country: None (occurrence: None)
  Receive Date: 20050816
  Receipt Date: 20050803
  Transmission Date: 20060218
  Serious: Yes (Hospitalization)
  Sender: FDA-Public Use
  Company Number: OMPQ-PR-0508L-1121

PATIENT
  Age: 29 Year
  Sex: Male

DRUGS (2)
  1. OMNIPAQUE 300 [Suspect]
     Indication: DYSARTHRIA
     Dosage: 100 ML, SINGLE DOSE, I.A.
     Route: 013
  2. OMNIPAQUE 300 [Suspect]
     Indication: FACIAL PARESIS
     Dosage: 100 ML, SINGLE DOSE, I.A.
     Route: 013

REACTIONS (4)
  - AMNESIA [None]
  - DISORIENTATION [None]
  - GLOBAL AMNESIA [None]
  - SOMNOLENCE [None]
